FAERS Safety Report 5168770-5 (Version None)
Quarter: 2006Q4

REPORT INFORMATION
  Report Type: 
  Country: None (occurrence: None)
  Receive Date: 20061211
  Receipt Date: 20061205
  Transmission Date: 20070319
  Serious: Yes (Other)
  Sender: FDA-Public Use
  Company Number: US-JNJFOC-20061201471

PATIENT
  Sex: Male
  Weight: 63.5 kg

DRUGS (3)
  1. TYLENOL (CAPLET) [Suspect]
     Route: 048
  2. TYLENOL (CAPLET) [Suspect]
     Indication: ARTHRALGIA
     Dosage: X 3 DOSES
     Route: 048
  3. PLAVIX [Concomitant]

REACTIONS (3)
  - COORDINATION ABNORMAL [None]
  - DISTURBANCE IN ATTENTION [None]
  - VISUAL DISTURBANCE [None]
